FAERS Safety Report 6249181-8 (Version None)
Quarter: 2009Q2

REPORT INFORMATION
  Report Type: 
  Country: None (occurrence: None)
  Receive Date: 20090624
  Receipt Date: 20090624
  Transmission Date: 20091009
  Serious: No
  Sender: FDA-Public Use
  Company Number: None

PATIENT
  Age: 32 Year
  Sex: Male
  Weight: 90.7194 kg

DRUGS (1)
  1. LEXAPRO [Suspect]
     Indication: DEPRESSION
     Dosage: 1 ONCE A DAY PO
     Route: 048
     Dates: start: 20070817, end: 20071217

REACTIONS (3)
  - BLOOD TESTOSTERONE DECREASED [None]
  - ERECTILE DYSFUNCTION [None]
  - LIBIDO DECREASED [None]
